FAERS Safety Report 4909415-6 (Version None)
Quarter: 2006Q1

REPORT INFORMATION
  Report Type: 
  Country: None (occurrence: None)
  Receive Date: 20060213
  Receipt Date: 20060201
  Transmission Date: 20060701
  Serious: Yes (Hospitalization, Other)
  Sender: FDA-Public Use
  Company Number: US-AVENTIS-200611239US

PATIENT
  Age: 54 Year
  Sex: Female

DRUGS (13)
  1. LANTUS [Suspect]
     Indication: DIABETES MELLITUS NON-INSULIN-DEPENDENT
     Dates: start: 20051101
  2. OPTICLIK (INSULIN INJECTION PEN) [Suspect]
  3. ATENOLOL [Concomitant]
     Dosage: DOSE: UNK
  4. LASIX [Concomitant]
     Dosage: DOSE: UNK
  5. FLONASE [Concomitant]
     Dosage: DOSE: UNK
  6. ALBUTEROL [Concomitant]
     Dosage: DOSE: UNK
  7. SINGULAIR [Concomitant]
     Dosage: DOSE: UNK
  8. NEXIUM [Concomitant]
     Dosage: DOSE: UNK
  9. ESTRADIOL [Concomitant]
     Dosage: DOSE: UNK
  10. ASPIRIN [Concomitant]
     Dosage: DOSE: UNK
  11. UNKNOWN DRUG [Concomitant]
     Dosage: DOSE: UNK
  12. NOVOLOG [Concomitant]
     Dosage: DOSE: UNK
  13. ADVAIR DISKUS 100/50 [Concomitant]
     Dosage: DOSE: UNK

REACTIONS (6)
  - ASTHMA [None]
  - BACTERAEMIA [None]
  - DEVICE FAILURE [None]
  - INJECTION SITE EXTRAVASATION [None]
  - PNEUMONIA [None]
  - PYREXIA [None]
